FAERS Safety Report 8149987 (Version 2)
Quarter: 2013Q3

REPORT INFORMATION
  Report Type: Report from Study
  Country: DE (occurrence: DE)
  Receive Date: 20110922
  Receipt Date: 20130726
  Transmission Date: 20140515
  Serious: Yes (Death, Hospitalization)
  Sender: FDA-Public Use
  Company Number: DE-ROCHE-803361

PATIENT
  Age: 67 Year
  Sex: Female

DRUGS (3)
  1. TOCILIZUMAB [Suspect]
     Indication: RHEUMATOID ARTHRITIS
     Dosage: CUMULATIVE DOSE 2400 MG.
     Route: 065
     Dates: start: 200912, end: 201002
  2. ADALIMUMAB [Suspect]
     Indication: RHEUMATOID ARTHRITIS
     Dosage: CUMULATIVE DOSE 800 MG.
     Route: 065
     Dates: start: 200902, end: 200911
  3. LEFLUNOMIDE [Concomitant]
     Indication: RHEUMATOID ARTHRITIS
     Route: 065
     Dates: start: 200811, end: 201003

REACTIONS (16)
  - Pancreatitis necrotising [Fatal]
  - Ileus paralytic [Fatal]
  - Post procedural sepsis [Fatal]
  - Renal failure acute [Fatal]
  - Postoperative respiratory failure [Fatal]
  - Hiatus hernia [Unknown]
  - Hepatic cyst [Unknown]
  - Wound infection [Unknown]
  - Pneumonia [Unknown]
  - Thrombocytopenia [Unknown]
  - Hepatomegaly [Unknown]
  - Pleural effusion [Unknown]
  - Haematochezia [Unknown]
  - Abscess intestinal [Unknown]
  - Gallbladder perforation [Unknown]
  - Cholecystitis [Unknown]
